FAERS Safety Report 11754845 (Version 1)
Quarter: 2015Q4

REPORT INFORMATION
  Report Type: Spontaneous
  Country: US (occurrence: US)
  Receive Date: 20151119
  Receipt Date: 20151119
  Transmission Date: 20160304
  Serious: Yes (Other)
  Sender: FDA-Public Use
  Company Number: US-ASTRAZENECA-2015SF10153

PATIENT
  Age: 22778 Day
  Sex: Female

DRUGS (1)
  1. BRILINTA [Suspect]
     Active Substance: TICAGRELOR
     Indication: ACUTE CORONARY SYNDROME
     Route: 048
     Dates: start: 20151111

REACTIONS (3)
  - Weight decreased [Unknown]
  - Haemorrhage [Not Recovered/Not Resolved]
  - Animal scratch [Not Recovered/Not Resolved]

NARRATIVE: CASE EVENT DATE: 20151111
